FAERS Safety Report 9178148 (Version 2)
Quarter: 2012Q4

REPORT INFORMATION
  Report Type: 
  Country: US (occurrence: US)
  Receive Date: 20121025
  Receipt Date: 20121207
  Transmission Date: 20130627
  Serious: Yes (Other)
  Sender: FDA-Public Use
  Company Number: US-BIOMARINP-003128

PATIENT
  Age: 10 None
  Sex: Male
  Weight: 24.27 kg

DRUGS (1)
  1. KUVAN [Suspect]
     Indication: PHENYLKETONURIA
     Route: 048
     Dates: start: 201206, end: 20121016

REACTIONS (8)
  - Convulsion [Unknown]
  - Stereotypy [Unknown]
  - Myoclonus [Unknown]
  - Abnormal behaviour [Unknown]
  - Malaise [Unknown]
  - Pyrexia [Unknown]
  - Inappropriate affect [None]
  - Partial seizures [None]
